FAERS Safety Report 9837649 (Version 2)
Quarter: 2014Q2

REPORT INFORMATION
  Report Type: Spontaneous
  Country: US (occurrence: None)
  Receive Date: 20131205
  Receipt Date: 20140416
  Transmission Date: 20141212
  Serious: Yes (Hospitalization, Other)
  Sender: FDA-Public Use
  Company Number: 163-POMAL-13080087

PATIENT
  Age: 69 Year
  Sex: Male
  Weight: 117.94 kg

DRUGS (24)
  1. POMALYST [Suspect]
     Indication: PLASMA CELL MYELOMA
     Dosage: 21 IN 28D
     Route: 048
     Dates: start: 20130701, end: 20130729
  2. KYPROLIS (OTHER THERAPEUTIC PRODUCTS) [Concomitant]
  3. DECADRON (DEXAMETHASONE) [Concomitant]
  4. POLYTRIM (POLYTRIM) [Concomitant]
  5. IGG [Concomitant]
  6. FLUIDS (IV SOLUTION) [Concomitant]
  7. ACYCLOVIR (ACICLOVIR) (ACICLOVIR) [Concomitant]
  8. NORVASC (AMLODIPINE BESILATE) [Concomitant]
  9. STEROIDS (OTHER THERAPEUTIC PRODUCTS) [Concomitant]
  10. OXYCODONE (OXYCODONE) [Concomitant]
  11. METOPROLOL (METOPROLOL) [Concomitant]
  12. ASPIRIN (ACETYLSALICYLIC ACID) [Concomitant]
  13. ZOFRAN (ONDANSETRON HYDROCHLORIDE) [Concomitant]
  14. PHENERGAN (PROMERTHAZINE HYDROCHLORIDE) [Concomitant]
  15. INSULIN LANTUS (INSULIN GLARGINE) [Concomitant]
  16. CIPROFLOXACIN (CIPROFLOXACIN) [Concomitant]
  17. FIRST MARYS (MOUTHWASH (DIPHENHYDRAMINE HCL W/LIDOCAINE NYSTATIN) [Concomitant]
  18. FAMOTIDINE (FAMOTIDINE) [Concomitant]
  19. INSULIN NOVOLOG (INSULIN ASPART) [Concomitant]
  20. MULTIVITAMIN W/MINERALS (MULVITAMINS  + MINERALS PLUS LUTEIN) [Concomitant]
  21. HYPOTEARS (HYPOTEARS) [Concomitant]
  22. SODIUM BICARBONATE (SODIUM BICARBONATE) [Concomitant]
  23. POTASSIUM CHLORIDE (POTASSIUM CHLORIDE) [Concomitant]
  24. MAGNESIUM (MAGNESIUM) [Concomitant]

REACTIONS (5)
  - Plasma cell myeloma [None]
  - Renal failure acute [None]
  - Full blood count decreased [None]
  - Anaemia [None]
  - Thrombocytopenia [None]
